FAERS Safety Report 20101506 (Version 1)
Quarter: 2021Q4

REPORT INFORMATION
  Report Type: Spontaneous
  Country: US (occurrence: None)
  Receive Date: 20211122
  Receipt Date: 20211122
  Transmission Date: 20220303
  Serious: Yes (Hospitalization)
  Sender: FDA-Public Use
  Company Number: None

PATIENT
  Sex: Female

DRUGS (17)
  1. XELJANZ [Suspect]
     Active Substance: TOFACITINIB CITRATE
     Indication: Psoriatic arthropathy
     Dosage: FREQUENCY : TWICE A DAY;?
     Route: 048
     Dates: start: 20210616
  2. CLONAZEPAM [Concomitant]
     Active Substance: CLONAZEPAM
  3. GABAPENTIN [Concomitant]
     Active Substance: GABAPENTIN
  4. LEFLUNOMIDE [Concomitant]
     Active Substance: LEFLUNOMIDE
  5. LEVOTHYROXINE [Concomitant]
     Active Substance: LEVOTHYROXINE
  6. LINZESS [Concomitant]
     Active Substance: LINACLOTIDE
  7. MELOXICAM [Suspect]
     Active Substance: MELOXICAM
  8. METHOCARBAMOL [Concomitant]
     Active Substance: METHOCARBAMOL
  9. METHOTREXATE [Concomitant]
     Active Substance: METHOTREXATE
  10. OMEPRAZOLE [Concomitant]
     Active Substance: OMEPRAZOLE
  11. POT CL [Concomitant]
  12. MICRO ER [Concomitant]
  13. PREDNISONE [Concomitant]
     Active Substance: PREDNISONE
  14. PROPRANOLOL [Concomitant]
     Active Substance: PROPRANOLOL HYDROCHLORIDE
  15. SPIRONOLACTONE [Concomitant]
     Active Substance: SPIRONOLACTONE
  16. SUMATRIPTAN [Concomitant]
     Active Substance: SUMATRIPTAN
  17. TRAZODONE [Concomitant]
     Active Substance: TRAZODONE HYDROCHLORIDE

REACTIONS (2)
  - Fatigue [None]
  - Migraine [None]
